FAERS Safety Report 20607001 (Version 2)
Quarter: 2022Q1

REPORT INFORMATION
  Report Type: Spontaneous
  Country: GB (occurrence: GB)
  Receive Date: 20220317
  Receipt Date: 20220329
  Transmission Date: 20220423
  Serious: Yes (Hospitalization)
  Sender: FDA-Public Use
  Company Number: GB-MHRA-MED-202203040943342210-5EIC1

PATIENT

DRUGS (1)
  1. OXALIPLATIN [Suspect]
     Active Substance: OXALIPLATIN
     Dosage: 150 MG
     Dates: start: 20220104

REACTIONS (3)
  - Nausea [Unknown]
  - Epistaxis [Unknown]
  - Hypertension [Unknown]

NARRATIVE: CASE EVENT DATE: 20220104
